FAERS Safety Report 7990670-3 (Version None)
Quarter: 2011Q4

REPORT INFORMATION
  Report Type: 
  Country: None (occurrence: None)
  Receive Date: 20111219
  Receipt Date: 20111208
  Transmission Date: 20120403
  Serious: Yes (Other)
  Sender: FDA-Public Use
  Company Number: KR-BAYER-2011-118035

PATIENT
  Sex: Female

DRUGS (2)
  1. ANGELIQ [Suspect]
     Indication: MENOPAUSAL SYMPTOMS
     Dosage: UNK
     Route: 048
     Dates: start: 20100701, end: 20110701
  2. ANGELIQ [Suspect]
     Indication: ANXIETY
     Dosage: 1 DF, QD
     Route: 048
     Dates: start: 20111209

REACTIONS (5)
  - WEIGHT DECREASED [None]
  - HOT FLUSH [None]
  - DECREASED APPETITE [None]
  - SUICIDAL IDEATION [None]
  - ANXIETY [None]
